FAERS Safety Report 15329128 (Version 1)
Quarter: 2018Q4

REPORT INFORMATION
  Report Type: Report from Study
  Country: ES (occurrence: ES)
  Receive Date: 20180829
  Receipt Date: 20180829
  Transmission Date: 20190204
  Serious: Yes (Hospitalization)
  Sender: FDA-Public Use
  Company Number: ES-TEVA-2018-ES-948857

PATIENT
  Age: 86 Year
  Sex: Female

DRUGS (7)
  1. REXER 15 [Suspect]
     Active Substance: MIRTAZAPINE
     Indication: DEPRESSION
     Dosage: 15 MILLIGRAM DAILY;
     Route: 048
     Dates: start: 201709
  2. SERTRALINA 50 [Suspect]
     Active Substance: SERTRALINE HYDROCHLORIDE
     Indication: DEPRESSION
     Dosage: 75 MILLIGRAM DAILY; 1-1/2-0
     Route: 048
     Dates: start: 201709
  3. ADIRO 100 MG COMPRIMIDOS GASTRORRESISTENTES EFG , 30 COMPRIMIDOS [Concomitant]
     Active Substance: ASPIRIN
     Dosage: 100 MILLIGRAM DAILY; 1/24H
     Route: 048
     Dates: start: 201103
  4. SULPIRIDA (3076A) [Concomitant]
     Route: 048
     Dates: start: 201709
  5. COAPROVEL 300 MG/12,5 MG COMPRIMIDOS RECUBIERTOS CON PELICULA, 28 COMP [Concomitant]
     Dosage: 1 DOSAGE FORMS DAILY; 1/24H
     Route: 048
     Dates: start: 200911
  6. ATORVASTATINA NORMON 20 MG COMPRIMIDOS RECUBIERTOS CON PELICULA EFG , [Concomitant]
     Dosage: 20 MILLIGRAM DAILY; 1/24H
     Route: 048
     Dates: start: 201704
  7. ORFIDAL [Concomitant]
     Active Substance: LORAZEPAM
     Dosage: YES ANXIETY
     Route: 048

REACTIONS (3)
  - Head injury [Recovered/Resolved]
  - Syncope [Recovered/Resolved]
  - Fall [Recovered/Resolved]

NARRATIVE: CASE EVENT DATE: 20171006
